FAERS Safety Report 9725306 (Version 1)
Quarter: 2013Q4

REPORT INFORMATION
  Report Type: Spontaneous
  Country: US (occurrence: None)
  Receive Date: 20131202
  Receipt Date: 20131202
  Transmission Date: 20140711
  Serious: Yes (Disabling, Other)
  Sender: FDA-Public Use
  Company Number: None

PATIENT
  Age: 29 Year
  Sex: Male
  Weight: 99.79 kg

DRUGS (1)
  1. LEVOFLOXACIN [Suspect]
     Indication: PYREXIA
     Dosage: 1 PILL, ONCE DAILY, TAKEN BY MOUTH
     Route: 048
     Dates: start: 20131025, end: 20131030

REACTIONS (3)
  - Rash erythematous [None]
  - Pain in extremity [None]
  - Local swelling [None]
